FAERS Safety Report 8456960-5 (Version None)
Quarter: 2012Q2

REPORT INFORMATION
  Report Type: 
  Country: None (occurrence: None)
  Receive Date: 20120621
  Receipt Date: 20120615
  Transmission Date: 20120825
  Serious: Yes (Death)
  Sender: FDA-Public Use
  Company Number: US-BAXTER-2012BAX008708

PATIENT
  Sex: Male

DRUGS (3)
  1. DIANEAL [Suspect]
     Indication: PERITONEAL DIALYSIS
     Route: 033
     Dates: start: 20100708
  2. DIANEAL [Suspect]
     Route: 033
     Dates: start: 20100708
  3. DIANEAL [Suspect]
     Route: 033
     Dates: start: 20100708

REACTIONS (2)
  - DEATH [None]
  - PROCEDURAL PAIN [None]
